FAERS Safety Report 6019703-0 (Version None)
Quarter: 2008Q4

REPORT INFORMATION
  Report Type: 
  Country: None (occurrence: None)
  Receive Date: 20081224
  Receipt Date: 20081215
  Transmission Date: 20090506
  Serious: Yes (Hospitalization)
  Sender: FDA-Public Use
  Company Number: NL-WATSON-2008-07369

PATIENT
  Age: 41 Year
  Sex: Male

DRUGS (3)
  1. ETOPOSIDE [Suspect]
     Indication: TESTIS CANCER
     Dosage: 100 MG/M2, DAILY (DAYS 1-5)
     Route: 042
  2. BLEOMYCIN SULFATE [Suspect]
     Indication: TESTIS CANCER
     Dosage: 30 MG, DAILY (DAYS 2, 8, 15)
     Route: 042
  3. CISPLATIN [Suspect]
     Indication: TESTIS CANCER
     Dosage: 20 MG/M2, DAILY (DAYS 1-5)
     Route: 042

REACTIONS (1)
  - GUILLAIN-BARRE SYNDROME [None]
